FAERS Safety Report 5683427-X (Version None)
Quarter: 2008Q1

REPORT INFORMATION
  Report Type: 
  Country: None (occurrence: None)
  Receive Date: 20080326
  Receipt Date: 20080311
  Transmission Date: 20080703
  Serious: Yes (Death, Life-Threatening, Hospitalization)
  Sender: FDA-Public Use
  Company Number: 2007S1009819

PATIENT
  Age: 67 Year
  Sex: Male

DRUGS (27)
  1. DOXYCYCLINE [Suspect]
     Indication: DRUG USE FOR UNKNOWN INDICATION
     Dosage: ;ORAL
     Route: 048
  2. ACOMPLIA [Suspect]
     Indication: WEIGHT CONTROL
     Dosage: 20 MG;DAILY;ORAL
     Route: 048
  3. ALLOPURINOL [Concomitant]
  4. AMOXICILLIN [Concomitant]
  5. ASPIRIN [Concomitant]
  6. ATORVASTATIN [Concomitant]
  7. BUDESONIDE [Concomitant]
  8. CHLORHEXIDINE GLUCONATE [Concomitant]
  9. CIALIS [Concomitant]
  10. HYDROCORTISONE W/MICONAZOLE [Concomitant]
  11. PARAFFIN [Concomitant]
  12. DOUBLEASE L [Concomitant]
  13. DOXYCYCLINE [Concomitant]
  14. ERYTHROMYCIN [Concomitant]
  15. FORMOTEROL FUMARATE [Concomitant]
  16. FUROSEMIDE [Concomitant]
  17. GLIPIZIDE [Concomitant]
  18. HYDROCHLOROTHIAZIDE [Concomitant]
  19. LANSOPRAZOLE [Concomitant]
  20. LISINOPRIL [Concomitant]
  21. METFORMIN HCL [Concomitant]
  22. MICONAZOLE [Concomitant]
  23. PREDNISOLONE [Concomitant]
  24. RAMIPRIL [Concomitant]
  25. ROSIGLITAZONE [Concomitant]
  26. SALAMOL [Concomitant]
  27. TIOTROPIUM BROMIDE [Concomitant]

REACTIONS (8)
  - BLOOD GLUCOSE ABNORMAL [None]
  - DERMATITIS EXFOLIATIVE [None]
  - DRUG INTERACTION [None]
  - DRY SKIN [None]
  - HYPOTENSION [None]
  - PNEUMONIA [None]
  - RENAL FAILURE ACUTE [None]
  - TOXIC SHOCK SYNDROME [None]
